FAERS Safety Report 8350064-8 (Version None)
Quarter: 2012Q2

REPORT INFORMATION
  Report Type: 
  Country: None (occurrence: None)
  Receive Date: 20120510
  Receipt Date: 20120504
  Transmission Date: 20120825
  Serious: Yes (Life-Threatening, Hospitalization)
  Sender: FDA-Public Use
  Company Number: US-BAYER-2012-020900

PATIENT
  Age: 33 Year
  Sex: Female
  Weight: 75.283 kg

DRUGS (7)
  1. YAZ [Suspect]
  2. D-AMPHETAMINE SALT COMPOUND XR [Concomitant]
     Dosage: 15 MG, QD
     Route: 048
  3. YASMIN [Suspect]
  4. HYDROCODONE BITARTRATE + ACETAMINOPHEN [Concomitant]
     Dosage: 5/500 MG AS NEEDED
     Route: 048
     Dates: start: 20100414
  5. OXYCODONE HCL AND ACETAMINOPHEN [Concomitant]
     Dosage: 5/325 MG AS NEEDED
     Route: 048
     Dates: start: 20100505
  6. ADDERALL 5 [Concomitant]
  7. PERCOCET [Concomitant]

REACTIONS (5)
  - PAIN [None]
  - ANXIETY [None]
  - ANHEDONIA [None]
  - DEEP VEIN THROMBOSIS [None]
  - FEAR [None]
